FAERS Safety Report 8826833 (Version 2)
Quarter: 2013Q1

REPORT INFORMATION
  Report Type: Spontaneous
  Country: US (occurrence: US)
  Receive Date: 20121005
  Receipt Date: 20130111
  Transmission Date: 20140127
  Serious: Yes (Other)
  Sender: FDA-Public Use
  Company Number: US-PFIZER INC-2012246628

PATIENT
  Age: 66 Year
  Sex: Female
  Weight: 61.2 kg

DRUGS (5)
  1. CELEBREX [Suspect]
     Indication: ARTHRITIS
     Dosage: 200 MG, 2X/DAY
     Route: 048
  2. CELEBREX [Suspect]
     Indication: PAIN
  3. ACTONEL [Concomitant]
     Indication: OSTEOPOROSIS
     Dosage: UNK
  4. GABAPENTIN [Concomitant]
     Dosage: UNK
  5. HYDROCODONE [Concomitant]
     Dosage: UNK

REACTIONS (1)
  - Ovarian cancer [Unknown]
